FAERS Safety Report 17878324 (Version 1)
Quarter: 2020Q2

REPORT INFORMATION
  Report Type: Spontaneous
  Country: US (occurrence: US)
  Receive Date: 20200610
  Receipt Date: 20200610
  Transmission Date: 20200714
  Serious: No
  Sender: FDA-Public Use
  Company Number: US-JNJFOC-20200605181

PATIENT
  Age: 80 Year
  Sex: Female
  Weight: 68.1 kg

DRUGS (1)
  1. WOMENS ROGAINE UNSCENTED [Suspect]
     Active Substance: MINOXIDIL
     Indication: ALOPECIA
     Dosage: HALF CAPFUL, ONCE A DAY, THE PATIENT LAST USED THE PRODUCT ON 30-MAY-2020.
     Route: 061
     Dates: start: 20200201

REACTIONS (2)
  - Alopecia [Not Recovered/Not Resolved]
  - Application site pruritus [Not Recovered/Not Resolved]

NARRATIVE: CASE EVENT DATE: 20200515
